FAERS Safety Report 9314897 (Version 2)
Quarter: 2013Q4

REPORT INFORMATION
  Report Type: Spontaneous
  Country: US (occurrence: US)
  Receive Date: 20130529
  Receipt Date: 20131114
  Transmission Date: 20140711
  Serious: Yes (Hospitalization)
  Sender: FDA-Public Use
  Company Number: US-B.I. PHARMACEUTICALS,INC./RIDGEFIELD-2013-BI-14420BP

PATIENT
  Age: 79 Year
  Sex: Female
  Weight: 67.13 kg

DRUGS (9)
  1. PRADAXA [Suspect]
     Indication: ANTICOAGULANT THERAPY
     Dosage: 300 MG
     Route: 048
     Dates: start: 20110709, end: 20121120
  2. MULTIVITAMIN [Concomitant]
  3. ASPIRIN [Concomitant]
     Dosage: 81 MG
  4. AVAPRO [Concomitant]
     Dosage: 300 MG
  5. CALCIUM 600 D3 [Concomitant]
     Route: 048
  6. FISH OIL [Concomitant]
     Dosage: 500 MG
     Route: 048
  7. UNSPECIFIED MEDICATION FOR BLOOD PRESSURE [Concomitant]
     Indication: HYPERTENSION
     Dosage: 150 MG
  8. PAXIL [Concomitant]
     Dosage: 20 MG
  9. VITAMIN D3 [Concomitant]
     Dosage: 1000 U
     Route: 048

REACTIONS (2)
  - Gastrointestinal haemorrhage [Unknown]
  - Ulcer haemorrhage [Unknown]
